FAERS Safety Report 9718932 (Version 5)
Quarter: 2015Q4

REPORT INFORMATION
  Report Type: Spontaneous
  Country: US (occurrence: US)
  Receive Date: 20131127
  Receipt Date: 20151009
  Transmission Date: 20160305
  Serious: Yes (Death, Hospitalization, Disabling, Other)
  Sender: FDA-Public Use
  Company Number: US-009507513-1311USA011928

PATIENT
  Sex: Female
  Weight: 77.98 kg

DRUGS (3)
  1. JANUVIA [Suspect]
     Active Substance: SITAGLIPTIN PHOSPHATE
     Indication: TYPE 2 DIABETES MELLITUS
     Dosage: 100 MG, DAILY
     Route: 048
     Dates: start: 20090330, end: 20091118
  2. VICTOZA [Suspect]
     Active Substance: LIRAGLUTIDE
     Indication: TYPE 2 DIABETES MELLITUS
     Dosage: 1.2 MG, DAILY
     Dates: start: 20100813, end: 20101221
  3. BYETTA [Suspect]
     Active Substance: EXENATIDE
     Indication: TYPE 2 DIABETES MELLITUS
     Dosage: 10 MCG, UNK
     Route: 048
     Dates: start: 20060915, end: 200611

REACTIONS (31)
  - Splenic artery aneurysm [Unknown]
  - Hiatus hernia [Unknown]
  - Metastases to liver [Unknown]
  - Dupuytren^s contracture operation [Unknown]
  - Pancreatic duct dilatation [Unknown]
  - Skin odour abnormal [Unknown]
  - Shoulder operation [Unknown]
  - Tonsillectomy [Unknown]
  - Metastases to lung [Unknown]
  - Pain [Not Recovered/Not Resolved]
  - Hypercholesterolaemia [Unknown]
  - Cough [Not Recovered/Not Resolved]
  - Functional gastrointestinal disorder [Unknown]
  - Hepatic steatosis [Unknown]
  - Pancreatic carcinoma metastatic [Unknown]
  - Adverse event [Unknown]
  - Urinary tract infection [Unknown]
  - Death [Fatal]
  - Hypertension [Unknown]
  - Sinus rhythm [Unknown]
  - Lung disorder [Unknown]
  - Limb operation [Unknown]
  - Abdominal discomfort [Recovered/Resolved]
  - Labile blood pressure [Unknown]
  - Pyuria [Unknown]
  - Dehydration [Unknown]
  - Gallbladder disorder [Unknown]
  - Cataract [Unknown]
  - Mesenteric panniculitis [Unknown]
  - Haemangioma of liver [Unknown]
  - Pancreatic duct obstruction [Unknown]

NARRATIVE: CASE EVENT DATE: 2009
